FAERS Safety Report 8998058 (Version 1)
Quarter: 2013Q1

REPORT INFORMATION
  Report Type: Report from Study
  Country: US (occurrence: US)
  Receive Date: 20130104
  Receipt Date: 20130104
  Transmission Date: 20140127
  Serious: Yes (Hospitalization)
  Sender: FDA-Public Use
  Company Number: US-ACTELION-A-US2012-76554

PATIENT
  Age: 72 Year
  Sex: Female

DRUGS (4)
  1. TRACLEER [Suspect]
     Indication: PULMONARY ARTERIAL HYPERTENSION
     Dosage: UNK
     Route: 048
  2. SILDENAFIL [Concomitant]
  3. TYVASO [Concomitant]
  4. ASPIRIN [Concomitant]

REACTIONS (3)
  - Gastroenteritis viral [Unknown]
  - Urinary tract infection [Recovering/Resolving]
  - Colitis [Recovering/Resolving]
